FAERS Safety Report 21685546 (Version 1)
Quarter: 2022Q4

REPORT INFORMATION
  Report Type: Report from Study
  Country: US (occurrence: US)
  Receive Date: 20221206
  Receipt Date: 20221206
  Transmission Date: 20230113
  Serious: No
  Sender: FDA-Public Use
  Company Number: US-ABBVIE-4181030

PATIENT
  Age: 72 Year
  Sex: Female

DRUGS (5)
  1. HUMIRA [Suspect]
     Active Substance: ADALIMUMAB
     Indication: Rheumatoid arthritis
     Route: 058
  2. MODERNA COVID-19 VACCINE [Concomitant]
     Active Substance: ELASOMERAN
     Indication: COVID-19 immunisation
     Dosage: 1 IN 1 ONCE, FIRST DOSE
     Route: 030
     Dates: start: 20210121, end: 20210121
  3. MODERNA COVID-19 VACCINE [Concomitant]
     Active Substance: ELASOMERAN
     Indication: COVID-19 immunisation
     Dosage: 1 IN 1 ONCE, SECOND DOSE
     Route: 030
     Dates: start: 20210228, end: 20210228
  4. MODERNA COVID-19 VACCINE [Concomitant]
     Active Substance: ELASOMERAN
     Indication: COVID-19 immunisation
     Dosage: 1 IN 1 ONCE, BOOSTER DOSE
     Route: 030
     Dates: start: 20211122, end: 20211122
  5. MODERNA COVID-19 VACCINE [Concomitant]
     Active Substance: ELASOMERAN
     Indication: COVID-19 immunisation
     Dosage: 1 IN 1 ONCE, SECOND BOOSTER DOSE
     Route: 030
     Dates: start: 20220926, end: 20220926

REACTIONS (1)
  - Feeling cold [Unknown]

NARRATIVE: CASE EVENT DATE: 20221001
